FAERS Safety Report 13689624 (Version 1)
Quarter: 2017Q2

REPORT INFORMATION
  Report Type: Spontaneous
  Country: US (occurrence: US)
  Receive Date: 20170626
  Receipt Date: 20170626
  Transmission Date: 20170830
  Serious: Yes (Other)
  Sender: FDA-Public Use
  Company Number: None

PATIENT
  Age: 82 Year
  Sex: Female
  Weight: 56.75 kg

DRUGS (5)
  1. CALCIUM [Concomitant]
     Active Substance: CALCIUM
  2. SYNTHROID [Concomitant]
     Active Substance: LEVOTHYROXINE SODIUM
  3. ASPIRIN. [Concomitant]
     Active Substance: ASPIRIN
  4. ATORVASTATIN 20MG TAB APO [Suspect]
     Active Substance: ATORVASTATIN
     Indication: BLOOD CHOLESTEROL INCREASED
     Route: 048
     Dates: start: 20170609, end: 20170609
  5. VITAMIN D [Concomitant]
     Active Substance: CHOLECALCIFEROL

REACTIONS (4)
  - Head discomfort [None]
  - Myalgia [None]
  - Gait disturbance [None]
  - Pain [None]

NARRATIVE: CASE EVENT DATE: 20170609
